FAERS Safety Report 18322422 (Version 2)
Quarter: 2020Q4

REPORT INFORMATION
  Report Type: Spontaneous
  Country: US (occurrence: US)
  Receive Date: 20200929
  Receipt Date: 20201008
  Transmission Date: 20210113
  Serious: Yes (Other)
  Sender: FDA-Public Use
  Company Number: US-AUROBINDO-AUR-APL-2020-049621

PATIENT
  Age: 68 Year
  Sex: Female
  Weight: 72 kg

DRUGS (5)
  1. KETOROLAC [Concomitant]
     Active Substance: KETOROLAC TROMETHAMINE
     Indication: PAIN
     Dosage: 15 MILLIGRAM
     Route: 042
  2. ETOMIDATE. [Suspect]
     Active Substance: ETOMIDATE
     Indication: SEDATIVE THERAPY
     Dosage: 0.15 MILLIGRAM/KILOGRAM
     Route: 065
  3. ETOMIDATE. [Suspect]
     Active Substance: ETOMIDATE
     Dosage: 10 MILLIGRAM
     Route: 042
  4. MORPHINE [Concomitant]
     Active Substance: MORPHINE
     Indication: PAIN
     Dosage: 4 MILLIGRAM
     Route: 042
  5. PROPOFOL. [Concomitant]
     Active Substance: PROPOFOL
     Indication: PRODUCT USED FOR UNKNOWN INDICATION
     Dosage: 100 MILLIGRAM
     Route: 065

REACTIONS (1)
  - Seizure [Recovered/Resolved]
